FAERS Safety Report 5819999-1 (Version None)
Quarter: 2008Q3

REPORT INFORMATION
  Report Type: 
  Country: None (occurrence: None)
  Receive Date: 20080724
  Receipt Date: 20080718
  Transmission Date: 20090109
  Serious: Yes (Other)
  Sender: FDA-Public Use
  Company Number: JP-SP-2008-02377

PATIENT

DRUGS (1)
  1. IMMUCYST [Suspect]
     Indication: BLADDER CANCER
     Route: 043
     Dates: start: 20080606, end: 20080711

REACTIONS (4)
  - ARTHRALGIA [None]
  - EYE DISORDER [None]
  - PYREXIA [None]
  - REITER'S SYNDROME [None]
